FAERS Safety Report 9395068 (Version 2)
Quarter: 2013Q4

REPORT INFORMATION
  Report Type: Spontaneous
  Country: FR (occurrence: FR)
  Receive Date: 20130711
  Receipt Date: 20131206
  Transmission Date: 20140711
  Serious: Yes (Hospitalization)
  Sender: FDA-Public Use
  Company Number: FR-MERCK-1307FRA000435

PATIENT
  Age: 61 Year
  Sex: Female

DRUGS (11)
  1. JANUVIA [Suspect]
     Indication: TYPE 2 DIABETES MELLITUS
     Dosage: 100 MG, QD
     Route: 048
     Dates: start: 20130518, end: 20130530
  2. GEMCITABINE HOSPIRA [Suspect]
     Indication: ADENOCARCINOMA PANCREAS
     Dosage: 2 G, QD
     Route: 042
     Dates: start: 20130515, end: 20130515
  3. GEMCITABINE HOSPIRA [Suspect]
     Dosage: 2 G, QD
     Route: 042
     Dates: start: 20130522, end: 20130522
  4. TOPALGIC (TRAMADOL HYDROCHLORIDE) [Suspect]
     Indication: PAIN
     Dosage: 100 MG, BID
     Dates: start: 20130510, end: 20130526
  5. PROPRANOLOL HYDROCHLORIDE [Concomitant]
     Indication: HYPERTENSION
     Dosage: 80 MG, QD
     Route: 048
     Dates: start: 20120511
  6. ALVITYL [Concomitant]
     Indication: HYPOVITAMINOSIS
     Dosage: UNK
     Route: 048
     Dates: start: 20130514
  7. ALPRAZOLAM MYLAN [Concomitant]
     Indication: ANXIETY
     Dosage: 0.5 MG, QD
     Route: 048
     Dates: start: 20130511
  8. ACETAMINOPHEN [Concomitant]
     Indication: PAIN
     Dosage: UNK
     Route: 048
     Dates: start: 20130510, end: 20130516
  9. CORTANCYL [Concomitant]
     Indication: PRODUCT USED FOR UNKNOWN INDICATION
     Dosage: 60 MG, QD
     Route: 048
     Dates: start: 20130515, end: 20130516
  10. ZOPHREN (ONDANSETRON HYDROCHLORIDE) [Concomitant]
     Indication: VOMITING
     Dosage: 8 MG, QD
     Route: 048
     Dates: start: 20130515, end: 20130522
  11. AUGMENTIN [Concomitant]
     Indication: RESPIRATORY TRACT INFECTION
     Dosage: 3 G, QD
     Route: 048
     Dates: start: 20130525, end: 20130531

REACTIONS (1)
  - Toxic skin eruption [Recovered/Resolved]
